FAERS Safety Report 6001968-2 (Version None)
Quarter: 2008Q4

REPORT INFORMATION
  Report Type: 
  Country: None (occurrence: None)
  Receive Date: 20081212
  Receipt Date: 20081203
  Transmission Date: 20090506
  Serious: No
  Sender: FDA-Public Use
  Company Number: DSU-2008-02114

PATIENT
  Age: 67 Year
  Sex: Female
  Weight: 72.5755 kg

DRUGS (5)
  1. WELCHOL [Suspect]
     Indication: HYPERCHOLESTEROLAEMIA
     Dosage: 375 MG (3750 MG, QD), PER ORAL
     Route: 048
     Dates: start: 20080901
  2. ACTIVELLA [Concomitant]
  3. ZYRTEC (CERTIZINE HYDROCHLORIDE) [Concomitant]
  4. LISINOPRIL HCT (HYDROCHLOROTHIAZIDE) [Concomitant]
  5. NANO VITAMINS (VITAMINS) [Concomitant]

REACTIONS (2)
  - DYSPHAGIA [None]
  - FOREIGN BODY TRAUMA [None]
